FAERS Safety Report 25745522 (Version 2)
Quarter: 2025Q4

REPORT INFORMATION
  Report Type: Spontaneous
  Country: CO (occurrence: CO)
  Receive Date: 20250901
  Receipt Date: 20251124
  Transmission Date: 20260118
  Serious: Yes (Other)
  Sender: REGENERON
  Company Number: CO-BAYER-2025A113528

PATIENT
  Sex: Female

DRUGS (2)
  1. EYLEA [Suspect]
     Active Substance: AFLIBERCEPT
     Indication: Iris atrophy
     Dosage: 40 MG, SOLUTION FOR INJECTION IN PRE-FILLED SYRINGE, 40 MG/ML
     Route: 031
     Dates: start: 20240812
  2. EYLEA [Suspect]
     Active Substance: AFLIBERCEPT
     Indication: Ciliary body degeneration

REACTIONS (2)
  - Blindness transient [Unknown]
  - Product use in unapproved indication [Unknown]
